FAERS Safety Report 5472245-3 (Version None)
Quarter: 2007Q3

REPORT INFORMATION
  Report Type: 
  Country: None (occurrence: None)
  Receive Date: 20070926
  Receipt Date: 20070917
  Transmission Date: 20080115
  Serious: Yes (Hospitalization)
  Sender: FDA-Public Use
  Company Number: CHPA2007US09776

PATIENT
  Age: 79 Year
  Sex: Female
  Weight: 122.4 kg

DRUGS (1)
  1. EXCEDRIN ES BACK + BODY (NCH)(ACETYLSALICYLICID ACID, ACETAMINOPHEN (P [Suspect]
     Indication: BACK PAIN
     Dosage: 2 DF, QD, ORAL
     Route: 048
     Dates: start: 20070731, end: 20070809

REACTIONS (1)
  - ULCER HAEMORRHAGE [None]
